FAERS Safety Report 21879212 (Version 1)
Quarter: 2023Q1

REPORT INFORMATION
  Report Type: Spontaneous
  Country: US (occurrence: None)
  Receive Date: 20230117
  Receipt Date: 20230117
  Transmission Date: 20230418
  Serious: No
  Sender: FDA-Public Use
  Company Number: None

PATIENT
  Age: 70 Year
  Sex: Male
  Weight: 81.65 kg

DRUGS (1)
  1. GLIPIZIDE [Suspect]
     Active Substance: GLIPIZIDE
     Indication: Diabetes mellitus
     Dosage: 5 MG BID PO
     Route: 048
     Dates: start: 20220425, end: 20220818

REACTIONS (3)
  - Hypoglycaemia [None]
  - Hypotension [None]
  - Lethargy [None]

NARRATIVE: CASE EVENT DATE: 20220817
